FAERS Safety Report 17194161 (Version 1)
Quarter: 2019Q4

REPORT INFORMATION
  Report Type: Spontaneous
  Country: SE (occurrence: SE)
  Receive Date: 20191224
  Receipt Date: 20191224
  Transmission Date: 20200122
  Serious: Yes (Hospitalization)
  Sender: FDA-Public Use
  Company Number: SE-009507513-1912SWE007516

PATIENT
  Sex: Female

DRUGS (3)
  1. PROPAVAN [Suspect]
     Active Substance: PROPIOMAZINE
     Dosage: UNK
     Route: 048
     Dates: start: 20190312, end: 20190312
  2. MIRTAZAPINE. [Suspect]
     Active Substance: MIRTAZAPINE
     Dosage: 500 MG
     Route: 048
     Dates: start: 20190312, end: 20190312
  3. VALSARTAN. [Suspect]
     Active Substance: VALSARTAN
     Dosage: ^VALSARTAN 80 MG (COMP/12.5 MG), A LITTLE MORE THAN 2200 MG^
     Route: 048
     Dates: start: 20190312, end: 20190312

REACTIONS (5)
  - Intentional overdose [Unknown]
  - Loss of consciousness [Unknown]
  - Transaminases increased [Unknown]
  - Intentional self-injury [Unknown]
  - Blood bilirubin increased [Unknown]

NARRATIVE: CASE EVENT DATE: 201903
